FAERS Safety Report 24552005 (Version 1)
Quarter: 2024Q4

REPORT INFORMATION
  Report Type: Report from Study
  Country: US (occurrence: US)
  Receive Date: 20241026
  Receipt Date: 20241026
  Transmission Date: 20250115
  Serious: Yes (Hospitalization)
  Sender: ACCORD
  Company Number: US-Accord-452172

PATIENT
  Sex: Male

DRUGS (4)
  1. CLOZAPINE [Suspect]
     Active Substance: CLOZAPINE
     Indication: Schizophrenia
     Dosage: 100MG, 2 TAB EVERY MORNING, 1 TAB EVERY EVENING, AND 2 TAB DAILY AT BEDTIME.
  2. DEPAKOTE [Concomitant]
     Active Substance: DIVALPROEX SODIUM
  3. ZYPREXA [Concomitant]
     Active Substance: OLANZAPINE
  4. COGENTIN [Concomitant]
     Active Substance: BENZTROPINE MESYLATE

REACTIONS (2)
  - Intestinal obstruction [Unknown]
  - Physical deconditioning [Unknown]
